FAERS Safety Report 4861639-2 (Version None)
Quarter: 2005Q4

REPORT INFORMATION
  Report Type: 
  Country: None (occurrence: None)
  Receive Date: 20051130
  Receipt Date: 20050331
  Transmission Date: 20060501
  Serious: Yes (Hospitalization)
  Sender: FDA-Public Use
  Company Number: 200510644BWH

PATIENT

DRUGS (2)
  1. CIPROFLOXACIN [Suspect]
     Dosage: ORAL
     Route: 048
  2. COUMADIN [Suspect]

REACTIONS (2)
  - BLEEDING TIME PROLONGED [None]
  - DIARRHOEA [None]
